FAERS Safety Report 19726644 (Version 1)
Quarter: 2021Q3

REPORT INFORMATION
  Report Type: Spontaneous
  Country: US (occurrence: US)
  Receive Date: 20210820
  Receipt Date: 20210820
  Transmission Date: 20211014
  Serious: No
  Sender: FDA-Public Use
  Company Number: None

PATIENT
  Age: 68 Year
  Sex: Female
  Weight: 54.9 kg

DRUGS (1)
  1. REGEN?COV [Suspect]
     Active Substance: CASIRIVIMAB\IMDEVIMAB
     Indication: SARS-COV-2 TEST POSITIVE
     Route: 058
     Dates: start: 20210818

REACTIONS (4)
  - Dehydration [None]
  - Unevaluable event [None]
  - COVID-19 [None]
  - Condition aggravated [None]

NARRATIVE: CASE EVENT DATE: 20210819
